FAERS Safety Report 9776939 (Version 1)
Quarter: 2013Q4

REPORT INFORMATION
  Report Type: Spontaneous
  Country: US (occurrence: US)
  Receive Date: 20131221
  Receipt Date: 20131221
  Transmission Date: 20140711
  Serious: No
  Sender: FDA-Public Use
  Company Number: 2013SP003741

PATIENT
  Age: 60 Year
  Sex: Female
  Weight: 59.4 kg

DRUGS (6)
  1. VANCOMYCIN [Suspect]
     Indication: PRODUCT USED FOR UNKNOWN INDICATION
     Dates: start: 2010, end: 2010
  2. CELECOXIB [Suspect]
     Indication: ARTHRALGIA
     Route: 048
     Dates: start: 2004, end: 2004
  3. CELECOXIB [Suspect]
     Indication: ARTHRALGIA
     Dates: end: 2010
  4. MORPHINE [Concomitant]
     Indication: PAIN
  5. DIPHENHYDRAMINE HYDROCHLORIDE [Concomitant]
     Indication: SLEEP DISORDER
  6. KLONOPIN [Concomitant]
     Indication: PRODUCT USED FOR UNKNOWN INDICATION

REACTIONS (2)
  - Drug hypersensitivity [Unknown]
  - Urticaria [Unknown]
